FAERS Safety Report 7375626-6 (Version None)
Quarter: 2011Q1

REPORT INFORMATION
  Report Type: 
  Country: None (occurrence: None)
  Receive Date: 20110325
  Receipt Date: 20110321
  Transmission Date: 20110831
  Serious: No
  Sender: FDA-Public Use
  Company Number: US-PFIZER INC-2011062647

PATIENT
  Sex: Male
  Weight: 104.76 kg

DRUGS (2)
  1. SOTALOL [Concomitant]
     Indication: ATRIAL FIBRILLATION
     Dosage: UNK
     Dates: start: 20080301
  2. SOMAVERT [Suspect]
     Indication: ACROMEGALY
     Dosage: 10 MG, DAILY
     Dates: start: 20091101

REACTIONS (2)
  - HORMONE LEVEL ABNORMAL [None]
  - POOR QUALITY DRUG ADMINISTERED [None]
